FAERS Safety Report 4994165-0 (Version None)
Quarter: 2006Q2

REPORT INFORMATION
  Report Type: 
  Country: None (occurrence: None)
  Receive Date: 20060503
  Receipt Date: 20060424
  Transmission Date: 20061013
  Serious: Yes (Hospitalization)
  Sender: FDA-Public Use
  Company Number: 2006JP000317

PATIENT
  Sex: Female
  Weight: 52 kg

DRUGS (4)
  1. TACROLIMUS [Suspect]
     Indication: RHEUMATOID ARTHRITIS
     Dosage: 1.5 MG, UID/QD, ORAL
     Route: 048
     Dates: start: 20051214, end: 20051218
  2. PREDNISOLONE [Concomitant]
  3. ULGUT     (BENEXATE HYDROCHLORIDE) CAPSULE [Concomitant]
  4. FAMOTIDINE TABLET [Concomitant]

REACTIONS (5)
  - MALAISE [None]
  - NAUSEA [None]
  - NYSTAGMUS [None]
  - STOMACH DISCOMFORT [None]
  - VERTIGO POSITIONAL [None]
